FAERS Safety Report 8785605 (Version 2)
Quarter: 2012Q4

REPORT INFORMATION
  Report Type: Report from Study
  Country: JP (occurrence: JP)
  Receive Date: 20120914
  Receipt Date: 20121214
  Transmission Date: 20130627
  Serious: Yes (Other)
  Sender: FDA-Public Use
  Company Number: JP-VERTEX PHARMACEUTICAL INC.-2012-020860

PATIENT
  Age: 56 Year
  Sex: Male

DRUGS (14)
  1. VX-950 (TELAPREVIR) [Suspect]
     Indication: CHRONIC HEPATITIS C
     Dosage: 2250 mg, qd
     Route: 048
     Dates: start: 20120308, end: 20120530
  2. VX-950 (TELAPREVIR) [Suspect]
     Dosage: 2250 mg, qd
     Route: 048
     Dates: end: 20120606
  3. PEGINTERFERON ALFA-2B [Suspect]
     Indication: CHRONIC HEPATITIS C
     Dosage: 1.5 ?g/kg, qw
     Route: 058
     Dates: start: 20120308, end: 20120425
  4. PEGINTERFERON ALFA-2B [Suspect]
     Dosage: 1.38 ?g/kg, qw
     Route: 058
     Dates: start: 20120426
  5. PEGINTERFERON ALFA-2B [Suspect]
     Dosage: 1.28 ?g/kg, qw
     Route: 058
     Dates: end: 20120830
  6. RIBAVIRIN [Suspect]
     Indication: CHRONIC HEPATITIS C
     Dosage: 1000 mg, qd
     Route: 048
     Dates: start: 20120308, end: 20120411
  7. RIBAVIRIN [Suspect]
     Dosage: 800 mg, qd
     Route: 048
     Dates: start: 20120412, end: 20120425
  8. RIBAVIRIN [Suspect]
     Dosage: 400 mg, qd
     Route: 048
     Dates: start: 20120426, end: 20120613
  9. RIBAVIRIN [Suspect]
     Dosage: 400 mg, qd
     Route: 048
     Dates: start: 20120705, end: 20120725
  10. RIBAVIRIN [Suspect]
     Dosage: 800 mg, qd
     Route: 048
     Dates: start: 20120726, end: 20120905
  11. NOVORAPID [Concomitant]
     Dosage: 36 DF, qd
     Route: 058
     Dates: end: 20120425
  12. NOVORAPID [Concomitant]
     Dosage: 12 DF, qd
     Route: 058
     Dates: start: 20120426
  13. LOXOPROFEN [Concomitant]
     Dosage: 60 mg, prn
     Route: 048
     Dates: start: 20120309, end: 20120317
  14. THYRADIN S [Concomitant]
     Dosage: 50 ?g, qd
     Route: 048
     Dates: start: 20120712

REACTIONS (1)
  - Neutrophil count decreased [Recovered/Resolved]
